FAERS Safety Report 6684233-X (Version None)
Quarter: 2010Q2

REPORT INFORMATION
  Report Type: 
  Country: None (occurrence: None)
  Receive Date: 20100416
  Receipt Date: 20100409
  Transmission Date: 20101027
  Serious: Yes (Hospitalization, Other)
  Sender: FDA-Public Use
  Company Number: US-B.I. PHARMACEUTICALS,INC./RIDGEFIELD-2008-BP-12742BP

PATIENT
  Sex: Female

DRUGS (12)
  1. SPIRIVA [Suspect]
     Indication: CHRONIC OBSTRUCTIVE PULMONARY DISEASE
     Dosage: 18 MCG
     Route: 055
     Dates: start: 20040101, end: 20070101
  2. ADVAIR DISKUS 100/50 [Suspect]
     Indication: CHRONIC OBSTRUCTIVE PULMONARY DISEASE
     Route: 055
     Dates: start: 20040101, end: 20070101
  3. TOPAMAX [Concomitant]
     Indication: CONVULSION
     Dosage: 200 MG
     Route: 048
     Dates: start: 20030101
  4. GABAPENTIN [Concomitant]
     Indication: PAIN IN EXTREMITY
     Dosage: 800 MG
     Route: 048
     Dates: start: 20060101
  5. ACTONEL [Concomitant]
     Indication: OSTEOPOROSIS
     Dosage: 5 MG
     Route: 048
     Dates: start: 20060101
  6. VALIUM [Concomitant]
     Indication: CONVULSION
     Dosage: 15 MG
     Route: 048
     Dates: start: 20050101
  7. ASPIRIN [Concomitant]
     Indication: PROPHYLAXIS
     Dosage: 81 MG
     Route: 048
     Dates: start: 20050101
  8. OXYCODONE [Concomitant]
     Indication: PAIN IN EXTREMITY
     Dosage: 60 MG
     Route: 048
     Dates: start: 20060101
  9. OXYCODONE [Concomitant]
     Indication: BACK PAIN
  10. ALBUTEROL [Concomitant]
     Indication: CHRONIC OBSTRUCTIVE PULMONARY DISEASE
     Route: 055
     Dates: start: 20050101
  11. ALBUTEROL [Concomitant]
     Route: 055
     Dates: start: 20050101
  12. PREDNISONE [Concomitant]
     Indication: CHRONIC OBSTRUCTIVE PULMONARY DISEASE

REACTIONS (6)
  - ASTHENIA [None]
  - CEREBROVASCULAR ACCIDENT [None]
  - HYPOAESTHESIA [None]
  - MUSCULAR WEAKNESS [None]
  - TRANSIENT ISCHAEMIC ATTACK [None]
  - TREMOR [None]
